FAERS Safety Report 7411690-3 (Version None)
Quarter: 2011Q2

REPORT INFORMATION
  Report Type: 
  Country: None (occurrence: None)
  Receive Date: 20110413
  Receipt Date: 20101108
  Transmission Date: 20111010
  Serious: Yes (Other)
  Sender: FDA-Public Use
  Company Number: US-BRISTOL-MYERS SQUIBB COMPANY-15377005

PATIENT
  Age: 54 Year
  Sex: Male

DRUGS (1)
  1. ERBITUX [Suspect]
     Indication: LUNG NEOPLASM MALIGNANT
     Dosage: 18OCT10-18OCT10,25OCT10-25OCT10,IV SUSP,100 MG TEST DOSE HAD 50 MG 20 MIN INFO INFUSION GIVEN
     Route: 042
     Dates: start: 20101018, end: 20101025

REACTIONS (3)
  - ERYTHEMA [None]
  - FLUSHING [None]
  - DYSPNOEA [None]
